FAERS Safety Report 5223125-X (Version None)
Quarter: 2007Q1

REPORT INFORMATION
  Report Type: 
  Country: None (occurrence: None)
  Receive Date: 20070122
  Receipt Date: 20070116
  Transmission Date: 20070707
  Serious: Yes (Hospitalization)
  Sender: FDA-Public Use
  Company Number: HQWYE578116JAN07

PATIENT
  Age: 21 Year
  Sex: Female

DRUGS (2)
  1. LEVONORGESTREL + ETHINYL ESTRADIOL [Suspect]
     Indication: ORAL CONTRACEPTION
     Dosage: 1 TABLET 1X PER 1 DAY ORAL; SEE IMAGE
     Route: 048
     Dates: start: 20040901, end: 20041113
  2. LEVONORGESTREL + ETHINYL ESTRADIOL [Suspect]
     Indication: ORAL CONTRACEPTION
     Dosage: 1 TABLET 1X PER 1 DAY ORAL; SEE IMAGE
     Route: 048
     Dates: start: 20041214

REACTIONS (5)
  - FEMUR FRACTURE [None]
  - METRORRHAGIA [None]
  - OPEN FRACTURE [None]
  - ROAD TRAFFIC ACCIDENT [None]
  - TIBIA FRACTURE [None]
